FAERS Safety Report 4859216-2 (Version None)
Quarter: 2005Q4

REPORT INFORMATION
  Report Type: 
  Country: None (occurrence: None)
  Receive Date: 20051219
  Receipt Date: 20050928
  Transmission Date: 20060501
  Serious: No
  Sender: FDA-Public Use
  Company Number: US-GLAXOSMITHKLINE-A0576164A

PATIENT
  Age: 28 Year
  Sex: Female

DRUGS (3)
  1. NICODERM CQ [Suspect]
  2. NICORETTE [Suspect]
  3. WELLBUTRIN [Concomitant]

REACTIONS (5)
  - ABNORMAL DREAMS [None]
  - DIZZINESS [None]
  - DYSPEPSIA [None]
  - MALAISE [None]
  - SOMNOLENCE [None]
